FAERS Safety Report 7419148-2 (Version None)
Quarter: 2011Q2

REPORT INFORMATION
  Report Type: 
  Country: None (occurrence: None)
  Receive Date: 20110415
  Receipt Date: 20110411
  Transmission Date: 20111010
  Serious: Yes (Death)
  Sender: FDA-Public Use
  Company Number: US-GENZYME-FLUD-1001069

PATIENT
  Age: 66 Year

DRUGS (10)
  1. FLUDARA [Suspect]
     Indication: MYELODYSPLASTIC SYNDROME
     Dosage: 30 MG/M2, QDX4
     Route: 065
  2. DECITABINE [Suspect]
     Dosage: 20 MG/M2, QDX5
     Route: 042
  3. DECITABINE [Suspect]
     Dosage: 20 MG/M2, QDX5
     Route: 042
  4. MELPHALAN HYDROCHLORIDE [Suspect]
     Indication: MYELODYSPLASTIC SYNDROME
     Dosage: 140 MG/M2, UNK
     Route: 065
  5. DECITABINE [Suspect]
     Indication: MYELODYSPLASTIC SYNDROME
     Dosage: 20 MG/M2, QDX5
     Route: 042
  6. FLUDARA [Suspect]
     Indication: STEM CELL TRANSPLANT
  7. MELPHALAN HYDROCHLORIDE [Suspect]
     Indication: STEM CELL TRANSPLANT
  8. DECITABINE [Suspect]
     Dosage: 20 MG/M2, QDX5
     Route: 042
  9. METHOTREXATE [Concomitant]
     Indication: PROPHYLAXIS AGAINST GRAFT VERSUS HOST DISEASE
     Dosage: UNK
     Route: 065
  10. TACROLIMUS [Concomitant]
     Indication: PROPHYLAXIS AGAINST GRAFT VERSUS HOST DISEASE
     Dosage: UNK
     Route: 065

REACTIONS (1)
  - MULTI-ORGAN FAILURE [None]
